FAERS Safety Report 9665202 (Version 2)
Quarter: 2014Q1

REPORT INFORMATION
  Report Type: Spontaneous
  Country: GB (occurrence: GB)
  Receive Date: 20131101
  Receipt Date: 20140124
  Transmission Date: 20141002
  Serious: Yes (Death, Hospitalization)
  Sender: FDA-Public Use
  Company Number: GB-B.I. PHARMACEUTICALS,INC./RIDGEFIELD-2013-BI-34892UK

PATIENT
  Age: 88 Year
  Sex: Male
  Weight: 70 kg

DRUGS (5)
  1. PRADAXA [Suspect]
     Indication: THROMBOSIS PROPHYLAXIS
     Dosage: 150 MG
     Route: 048
     Dates: start: 20120728, end: 20120804
  2. ALFUZOSIN [Concomitant]
  3. LANSOPRAZOLE [Concomitant]
  4. PARACETAMOL [Concomitant]
  5. SIMVASTATIN [Concomitant]

REACTIONS (4)
  - Duodenal ulcer perforation [Fatal]
  - Abdominal pain [Not Recovered/Not Resolved]
  - Constipation [Not Recovered/Not Resolved]
  - Drug prescribing error [Unknown]
